FAERS Safety Report 13450081 (Version 1)
Quarter: 2017Q2

REPORT INFORMATION
  Report Type: Spontaneous
  Country: US (occurrence: US)
  Receive Date: 20170417
  Receipt Date: 20170417
  Transmission Date: 20170830
  Serious: No
  Sender: FDA-Public Use
  Company Number: US-BION-20160625

PATIENT
  Age: 69 Year
  Sex: Female
  Weight: 58.97 kg

DRUGS (2)
  1. ALEVE [Suspect]
     Active Substance: NAPROXEN SODIUM
     Indication: ANALGESIC THERAPY
     Dosage: 1 DF BID AS NEEDED
     Route: 048
     Dates: end: 20161018
  2. ALEVE PM [Concomitant]
     Active Substance: DIPHENHYDRAMINE HYDROCHLORIDE\NAPROXEN SODIUM
     Dosage: 1 AS NEEDED AT BEDTIME

REACTIONS (3)
  - Product physical issue [Unknown]
  - Poor quality drug administered [Unknown]
  - Expired product administered [Unknown]

NARRATIVE: CASE EVENT DATE: 20161018
